FAERS Safety Report 4514299-4 (Version None)
Quarter: 2004Q4

REPORT INFORMATION
  Report Type: 
  Country: None (occurrence: None)
  Receive Date: 20041126
  Receipt Date: 20041115
  Transmission Date: 20050328
  Serious: Yes (Hospitalization)
  Sender: FDA-Public Use
  Company Number: 2004IM000946

PATIENT
  Age: 35 Year
  Sex: Male
  Weight: 79.3795 kg

DRUGS (1)
  1. INFERGEN [Suspect]
     Indication: HEPATITIS C
     Dates: end: 20041101

REACTIONS (2)
  - CELLULITIS [None]
  - INJECTION SITE ERYTHEMA [None]
